FAERS Safety Report 6329705-2 (Version None)
Quarter: 2009Q3

REPORT INFORMATION
  Report Type: 
  Country: None (occurrence: None)
  Receive Date: 20090826
  Receipt Date: 20090819
  Transmission Date: 20100115
  Serious: Yes (Life-Threatening, Hospitalization)
  Sender: FDA-Public Use
  Company Number: CH-JNJFOC-20090805833

PATIENT
  Age: 28 Year
  Sex: Male

DRUGS (9)
  1. RISPERDAL [Suspect]
     Indication: DRUG USE FOR UNKNOWN INDICATION
     Route: 048
  2. TEMESTA [Suspect]
     Indication: DRUG USE FOR UNKNOWN INDICATION
     Route: 048
  3. CLEXANE [Concomitant]
     Route: 058
  4. KONAKION [Concomitant]
     Route: 042
  5. CETALLERG [Concomitant]
     Route: 048
  6. PREDNISONE TAB [Concomitant]
     Route: 048
  7. CALCIMAGON-D3 [Concomitant]
     Route: 048
  8. PULMICORT-100 [Concomitant]
     Route: 055
  9. DOSPIR [Concomitant]
     Route: 055

REACTIONS (3)
  - ASPIRATION [None]
  - BRONCHOPNEUMONIA [None]
  - RESPIRATORY FAILURE [None]
